FAERS Safety Report 5920281-2 (Version None)
Quarter: 2008Q4

REPORT INFORMATION
  Report Type: 
  Country: None (occurrence: None)
  Receive Date: 20081016
  Receipt Date: 20081010
  Transmission Date: 20090506
  Serious: Yes (Life-Threatening, Hospitalization, Other)
  Sender: FDA-Public Use
  Company Number: BR-BAYER-200815186LA

PATIENT
  Age: 47 Year
  Sex: Female
  Weight: 75 kg

DRUGS (2)
  1. YAZ [Suspect]
     Indication: ORAL CONTRACEPTION
     Route: 048
     Dates: start: 20080301, end: 20080609
  2. TENORETIC 100 [Concomitant]
     Indication: DRUG USE FOR UNKNOWN INDICATION
     Route: 048

REACTIONS (9)
  - DEEP VEIN THROMBOSIS [None]
  - DYSPNOEA [None]
  - MOBILITY DECREASED [None]
  - MUSCULOSKELETAL PAIN [None]
  - OEDEMA PERIPHERAL [None]
  - PAIN IN EXTREMITY [None]
  - PULMONARY ARTERIAL HYPERTENSION [None]
  - PULMONARY EMBOLISM [None]
  - TACHYCARDIA [None]
